FAERS Safety Report 22520686 (Version 1)
Quarter: 2023Q2

REPORT INFORMATION
  Report Type: Report from Study
  Country: US (occurrence: US)
  Receive Date: 20230605
  Receipt Date: 20230605
  Transmission Date: 20230722
  Serious: Yes (Other)
  Sender: FDA-Public Use
  Company Number: US-MYLANLABS-2023M1057257

PATIENT
  Age: 7 Decade
  Sex: Male

DRUGS (9)
  1. CISPLATIN [Suspect]
     Active Substance: CISPLATIN
     Indication: Cholangiocarcinoma
     Dosage: UNK
     Route: 065
     Dates: start: 2020
  2. GEMCITABINE [Suspect]
     Active Substance: GEMCITABINE
     Indication: Cholangiocarcinoma
     Dosage: UNK
     Route: 065
     Dates: start: 2020
  3. LEUCOVORIN [Suspect]
     Active Substance: LEUCOVORIN
     Indication: Cholangiocarcinoma
     Dosage: UNK, FOLFOX REGIMEN
     Route: 065
     Dates: start: 2020
  4. FLUOROURACIL [Suspect]
     Active Substance: FLUOROURACIL
     Indication: Cholangiocarcinoma
     Dosage: UNK, FOLFOX REGIMEN
     Route: 065
     Dates: start: 2020
  5. OXALIPLATIN [Suspect]
     Active Substance: OXALIPLATIN
     Indication: Cholangiocarcinoma
     Dosage: UNK, FOLFOX REGIMEN
     Route: 065
     Dates: start: 2020
  6. IRINOTECAN [Suspect]
     Active Substance: IRINOTECAN
     Indication: Cholangiocarcinoma
     Dosage: UNK, FOLFOX REGIMEN
     Route: 065
     Dates: start: 2020
  7. CAPECITABINE [Suspect]
     Active Substance: CAPECITABINE
     Indication: Cholangiocarcinoma
     Dosage: UNK
     Route: 065
     Dates: start: 20200214
  8. CAPECITABINE [Suspect]
     Active Substance: CAPECITABINE
     Dosage: UNK, FOLFOX REGIMEN
     Route: 065
     Dates: start: 2020
  9. PEMBROLIZUMAB [Suspect]
     Active Substance: PEMBROLIZUMAB
     Indication: Cholangiocarcinoma
     Dosage: UNK
     Route: 065
     Dates: start: 2020

REACTIONS (2)
  - Drug ineffective [Unknown]
  - Disease progression [Unknown]
